FAERS Safety Report 9863385 (Version 1)
Quarter: 2014Q1

REPORT INFORMATION
  Report Type: Report from Study
  Country: TW (occurrence: TW)
  Receive Date: 20140203
  Receipt Date: 20140203
  Transmission Date: 20141002
  Serious: No
  Sender: FDA-Public Use
  Company Number: PHHY2014TW012648

PATIENT
  Age: 84 Year
  Sex: Male

DRUGS (99)
  1. AMN107 [Suspect]
     Dates: start: 20111216, end: 20111225
  2. AMN107 [Suspect]
     Dates: start: 20120109, end: 20120126
  3. AMN107 [Suspect]
     Dates: start: 20120127, end: 20120711
  4. AMN107 [Suspect]
     Dates: start: 20120712, end: 20120905
  5. AMN107 [Suspect]
     Dates: start: 20120906
  6. KCL [Concomitant]
     Indication: METABOLIC ALKALOSIS
     Dates: start: 20111230, end: 20120103
  7. ACETAMINOPHEN [Concomitant]
     Indication: PYREXIA
     Dates: start: 20111226, end: 20111226
  8. ACETYLSALICYLIC ACID [Concomitant]
     Indication: THROMBOSIS PROPHYLAXIS
     Dates: start: 20111226, end: 20111226
  9. ACETYLSALICYLIC ACID [Concomitant]
     Dosage: UNK
     Dates: start: 20120419
  10. ALLOPURINOL [Concomitant]
     Indication: HYPERURICAEMIA
     Dates: start: 20111206
  11. AMOXICILLIN [Concomitant]
     Indication: PNEUMONIA
     Dates: start: 20111226, end: 20120102
  12. AMOXICILLIN+CLAVULANIC ACID [Concomitant]
     Indication: INFLUENZA
     Dates: start: 20130404, end: 20130407
  13. ASPIRIN [Concomitant]
     Indication: THROMBOSIS PROPHYLAXIS
     Dates: start: 20120108, end: 20120419
  14. ATORVASTATIN [Concomitant]
     Indication: HYPERCHOLESTEROLAEMIA
     Dates: start: 20121129
  15. B.M [Concomitant]
     Indication: INFLUENZA
     Dosage: UNK
     Dates: start: 20130404, end: 20130415
  16. B.M [Concomitant]
     Dates: start: 20120108, end: 20120117
  17. BENZBROMARONE [Concomitant]
     Indication: HYPERURICAEMIA
     Dates: start: 20111226, end: 20111226
  18. BENZONATATE [Concomitant]
     Indication: COUGH
     Dates: start: 20130419, end: 20130502
  19. BROMHEXINE [Concomitant]
     Indication: PHARYNGITIS
     Dates: start: 20120416, end: 20120809
  20. BROMHEXINE [Concomitant]
     Indication: COUGH
     Dates: start: 20120622, end: 20120625
  21. BROMHEXINE [Concomitant]
     Dates: start: 20120712, end: 20120809
  22. BROMHEXINE [Concomitant]
     Dates: start: 20130419, end: 20130502
  23. BROWN MIXTURE                      /01682301/ [Concomitant]
     Indication: PHARYNGITIS
     Dates: start: 20120622, end: 20120625
  24. C.T.M. [Concomitant]
     Indication: URTICARIA
     Dates: start: 20120111, end: 20120126
  25. C.T.M. [Concomitant]
     Indication: RANULA
     Dates: start: 20120615, end: 20120629
  26. C.T.M. [Concomitant]
     Dates: start: 20120615, end: 20120706
  27. C.T.M. [Concomitant]
     Dates: start: 20121127, end: 20121225
  28. C.T.M. [Concomitant]
     Dates: start: 20130718, end: 20130721
  29. CEFTRIAXONE [Concomitant]
     Indication: PNEUMONIA
     Dates: start: 20111225, end: 20111226
  30. CEPHALEXIN [Concomitant]
     Indication: SKIN ULCER
     Dates: start: 20130806, end: 20130820
  31. CETIRIZINE [Concomitant]
     Indication: URTICARIA
     Dosage: UNK
     Dates: start: 20120712, end: 20121101
  32. CETIRIZINE [Concomitant]
     Dates: start: 20130918, end: 20131016
  33. CHLORHEXIDINE [Concomitant]
     Dates: start: 20120111, end: 20120117
  34. CHLORHEXIDINE [Concomitant]
     Dates: start: 20120111
  35. CHLORPHENIRAMIN [Concomitant]
     Indication: TRANSFUSION
     Dates: start: 20111226, end: 20111226
  36. CHLORPHENIRAMIN [Concomitant]
     Indication: URTICARIA
     Dates: start: 20111227, end: 20111227
  37. CHLORPHENIRAMIN [Concomitant]
     Indication: RANULA
     Dates: start: 20111228, end: 20111228
  38. CHLORPHENIRAMIN [Concomitant]
     Dates: start: 20120110, end: 20120110
  39. CHLORPHENIRAMIN [Concomitant]
     Dates: start: 20120203, end: 20120203
  40. CHLORPHENIRAMIN [Concomitant]
     Dates: start: 20120330, end: 20120330
  41. CHLORPHENIRAMIN [Concomitant]
     Dates: start: 20120518, end: 20120518
  42. CHLORPHENIRAMIN [Concomitant]
     Dates: start: 20130716, end: 20130716
  43. CHLORPHENIRAMIN [Concomitant]
     Dates: start: 20131016, end: 20131016
  44. CHLORPHENIRAMIN [Concomitant]
     Dates: start: 20130718, end: 20130718
  45. CLOBETASOL [Concomitant]
     Indication: ECZEMA
     Dates: start: 20120615, end: 20120629
  46. CLOBETASOL [Concomitant]
     Dates: start: 20120615, end: 20120706
  47. CLOBETASOL [Concomitant]
     Dates: start: 20121127, end: 20121225
  48. CLOPIDOGREL [Concomitant]
     Indication: MYOCARDIAL INFARCTION
     Dates: start: 20111226, end: 20111228
  49. CLOTRIMAZOLE [Concomitant]
     Indication: URTICARIA
     Dates: start: 20120111, end: 20120117
  50. CLOTRIMAZOLE [Concomitant]
     Dates: start: 20120111
  51. DESLORATADINE [Concomitant]
     Indication: URTICARIA
     Dates: start: 20121101, end: 20130503
  52. DICLOFENAC POTASSIUM [Concomitant]
     Indication: PHARYNGITIS
     Dates: start: 20120622, end: 20120625
  53. DIFLUCORTOLONE [Concomitant]
     Indication: ECZEMA
     Dates: start: 20120615
  54. DOXAZOSIN [Concomitant]
     Indication: HYPERTENSION
     Dates: start: 20120419
  55. ENALAPRIL [Concomitant]
     Indication: HYPERTENSION
     Dates: start: 20111226
  56. FEXOFENADINE [Concomitant]
     Indication: URTICARIA
     Dates: start: 20120420
  57. FEXOFENADINE [Concomitant]
     Dates: start: 20120420, end: 20120713
  58. FEXOFENADINE [Concomitant]
     Dates: start: 20130820, end: 20130917
  59. FUROSEMIDE [Concomitant]
     Indication: PLEURAL EFFUSION
     Dates: start: 20111225
  60. FUSIDIC ACID [Concomitant]
     Indication: SKIN ULCER
     Dates: start: 20130806, end: 20130820
  61. HYDROCORTISONE [Concomitant]
     Indication: WHEEZING
     Dates: start: 20111227, end: 20111227
  62. HYDROCORTISONE [Concomitant]
     Indication: RANULA
     Dates: start: 20111230, end: 20111230
  63. HYDROCORTISONE [Concomitant]
     Indication: TRANSFUSION
     Dates: start: 20120203, end: 20120203
  64. HYDROCORTISONE [Concomitant]
     Dates: start: 20120330, end: 20120330
  65. HYDROCORTISONE [Concomitant]
     Dates: start: 20120518, end: 20120518
  66. HYDROCORTISONE [Concomitant]
     Dates: start: 20130718, end: 20130718
  67. HYDROCORTISONE [Concomitant]
     Dates: start: 20131016, end: 20131016
  68. ISOSORBIDE DINITRATE [Concomitant]
     Indication: MYOCARDIAL INFARCTION
     Dates: start: 20111225, end: 20120419
  69. LEVOCETIRIZINE [Concomitant]
     Indication: RANULA
     Dates: start: 20130718, end: 20130721
  70. LORAZEPAM [Concomitant]
     Indication: INSOMNIA
     Dates: start: 20120104, end: 20120105
  71. LORAZEPAM [Concomitant]
     Dates: start: 20120111, end: 20120117
  72. MAGNESIUM OXIDE [Concomitant]
     Indication: CONSTIPATION
     Dates: start: 20111229, end: 20111231
  73. MAGNESIUM OXIDE [Concomitant]
     Dates: start: 20130121, end: 20130218
  74. MEDICON A [Concomitant]
     Indication: INFLUENZA
     Dates: start: 20130408, end: 20130415
  75. METOCLOPRAMIDE [Concomitant]
     Indication: CONSTIPATION
     Dates: start: 20120108, end: 20120128
  76. MIDAZOLAM [Concomitant]
     Indication: SEDATION
     Dates: start: 20111226, end: 20111226
  77. MIDAZOLAM [Concomitant]
     Dates: start: 20111227, end: 20111228
  78. MORPHINE [Concomitant]
     Indication: PLEURAL EFFUSION
     Dates: start: 20111226, end: 20111226
  79. MOSAPRIDE [Concomitant]
     Indication: CONSTIPATION
     Dates: start: 20130121, end: 20130218
  80. NIFLEC [Concomitant]
     Indication: COLONOSCOPY
     Dates: start: 20121220, end: 20121220
  81. OSELTAMIVIR [Concomitant]
     Indication: INFLUENZA
     Dates: start: 20130404, end: 20130409
  82. CITRATE [Concomitant]
     Indication: METABOLIC ACIDOSIS
     Dates: start: 20111230, end: 20111230
  83. POTASSIUM CHLORIDE [Concomitant]
     Indication: HYPOKALAEMIA
     Dates: start: 20111230, end: 20111230
  84. PREDNISOLONE [Concomitant]
     Indication: RANULA
     Dates: start: 20130718, end: 20130721
  85. RHIN [Concomitant]
     Indication: INFLUENZA
     Dates: start: 20130404, end: 20130415
  86. SENNOSIDE [Concomitant]
     Indication: CONSTIPATION
     Dates: start: 20130503, end: 20130520
  87. SENOKOT                                 /UNK/ [Concomitant]
     Indication: CONSTIPATION
     Dates: start: 20111223, end: 20111230
  88. SENOKOT                                 /UNK/ [Concomitant]
     Dates: start: 20111229, end: 20111231
  89. SENOKOT                                 /UNK/ [Concomitant]
     Dates: start: 20120111, end: 20120128
  90. SENOKOT                                 /UNK/ [Concomitant]
     Dates: start: 20120906, end: 20121004
  91. SENOKOT                                 /UNK/ [Concomitant]
     Dates: start: 20121214, end: 20130208
  92. PHOSPHATE ENEMA [Concomitant]
     Indication: CONSTIPATION
     Dates: start: 20120109, end: 20120109
  93. SPIRONOLACTONE [Concomitant]
     Indication: PLEURAL EFFUSION
     Dates: start: 20111231, end: 20120101
  94. TAMSULOSIN [Concomitant]
     Indication: BENIGN PROSTATIC HYPERPLASIA
     Dates: start: 20121130, end: 20130503
  95. TAMSULOSIN HYDROCHLORIDE [Concomitant]
     Indication: BENIGN PROSTATIC HYPERPLASIA
     Dates: start: 20120118, end: 20120419
  96. TRIAMCINOLONE [Concomitant]
     Indication: RANULA
     Dates: start: 20130716, end: 20130729
  97. COMBIVENT UDV [Concomitant]
     Indication: WHEEZING
     Dates: start: 20111226, end: 20111226
  98. URECREM [Concomitant]
     Indication: ECZEMA
     Dates: start: 20120615, end: 20120629
  99. URECREM [Concomitant]
     Dates: start: 20120615, end: 20120706

REACTIONS (1)
  - Aphthous stomatitis [Unknown]
